FAERS Safety Report 9097695 (Version 1)
Quarter: 2013Q1

REPORT INFORMATION
  Report Type: Spontaneous
  Country: AU (occurrence: AU)
  Receive Date: 20130212
  Receipt Date: 20130212
  Transmission Date: 20140127
  Serious: Yes (Other)
  Sender: FDA-Public Use
  Company Number: PHHY2012AU117785

PATIENT
  Sex: Female

DRUGS (2)
  1. ACLASTA [Suspect]
     Route: 042
     Dates: start: 20111207
  2. CITALOPRAM [Concomitant]
     Dosage: UNK UKN, UNK
     Route: 048

REACTIONS (1)
  - Burning sensation [Recovered/Resolved]
